FAERS Safety Report 24850744 (Version 1)
Quarter: 2025Q1

REPORT INFORMATION
  Report Type: Spontaneous
  Country: FR (occurrence: FR)
  Receive Date: 20250116
  Receipt Date: 20250116
  Transmission Date: 20250409
  Serious: Yes (Other)
  Sender: MERCK
  Company Number: FR-009507513-2501FRA003846

PATIENT
  Sex: Male

DRUGS (1)
  1. SOTATERCEPT [Suspect]
     Active Substance: SOTATERCEPT
     Route: 058

REACTIONS (2)
  - Choroidal effusion [Unknown]
  - Choroidal detachment [Unknown]
